FAERS Safety Report 8605902-8 (Version None)
Quarter: 2012Q3

REPORT INFORMATION
  Report Type: 
  Country: None (occurrence: None)
  Receive Date: 20120820
  Receipt Date: 20120809
  Transmission Date: 20120928
  Serious: Yes (Hospitalization)
  Sender: FDA-Public Use
  Company Number: SE-GLAXOSMITHKLINE-B0823273A

PATIENT

DRUGS (1)
  1. PAZOPANIB [Suspect]
     Indication: GASTROINTESTINAL STROMAL TUMOUR
     Dosage: 800MG PER DAY
     Route: 048

REACTIONS (1)
  - SEPSIS [None]
